FAERS Safety Report 6444377-4 (Version None)
Quarter: 2009Q4

REPORT INFORMATION
  Report Type: 
  Country: None (occurrence: None)
  Receive Date: 20091118
  Receipt Date: 20091105
  Transmission Date: 20100525
  Serious: Yes (Other)
  Sender: FDA-Public Use
  Company Number: TR-BRISTOL-MYERS SQUIBB COMPANY-14857080

PATIENT
  Age: 5 Day
  Sex: Female

DRUGS (2)
  1. METFORMIN HCL [Suspect]
     Indication: HYPERGLYCAEMIA
  2. INSULIN [Concomitant]
     Indication: HYPERGLYCAEMIA
     Dosage: 1 DF = .01 U/KG/H - 1 U/KG/H PER DAY.
     Route: 042

REACTIONS (4)
  - ABDOMINAL DISTENSION [None]
  - FEEDING DISORDER NEONATAL [None]
  - GASTROINTESTINAL DISORDER [None]
  - VOMITING [None]
